FAERS Safety Report 17426698 (Version 2)
Quarter: 2020Q2

REPORT INFORMATION
  Report Type: Spontaneous
  Country: US (occurrence: US)
  Receive Date: 20200217
  Receipt Date: 20200409
  Transmission Date: 20200713
  Serious: Yes (Death, Other)
  Sender: FDA-Public Use
  Company Number: US-TASMAN PHARMA, INC.-2020TSM00021

PATIENT
  Age: 62 Year
  Sex: Male
  Weight: 78.01 kg

DRUGS (5)
  1. VERSACLOZ [Suspect]
     Active Substance: CLOZAPINE
     Dosage: 200 MG, 2X/DAY
     Route: 048
     Dates: start: 20100614, end: 20191223
  2. JEVITY [Concomitant]
     Active Substance: DIETARY SUPPLEMENT
  3. LEVOCARNITINE. [Concomitant]
     Active Substance: LEVOCARNITINE
  4. OXYBUTYNIN. [Concomitant]
     Active Substance: OXYBUTYNIN CHLORIDE
  5. DEPAKENE [Concomitant]
     Active Substance: VALPROIC ACID

REACTIONS (2)
  - Death [Fatal]
  - Neutropenia [Recovered/Resolved]

NARRATIVE: CASE EVENT DATE: 20191120
